FAERS Safety Report 8286496-6 (Version None)
Quarter: 2012Q2

REPORT INFORMATION
  Report Type: 
  Country: None (occurrence: None)
  Receive Date: 20120416
  Receipt Date: 20120412
  Transmission Date: 20120825
  Serious: Yes (Other)
  Sender: FDA-Public Use
  Company Number: US-PFIZER INC-2012060774

PATIENT
  Sex: Female
  Weight: 70.748 kg

DRUGS (6)
  1. ZYPREXA [Concomitant]
     Indication: ANXIETY
     Dosage: 2.5 MG, DAILY
  2. LYRICA [Suspect]
     Indication: COMPLEX REGIONAL PAIN SYNDROME
     Dosage: 225 MG, DAILY
     Dates: end: 20120303
  3. PLAVIX [Concomitant]
     Indication: CARDIAC DISORDER
     Dosage: 75 MG, DAILY
  4. CYMBALTA [Concomitant]
     Indication: ANXIETY
     Dosage: 90 MG, DAILY
  5. ACETYLSALICYLIC ACID [Concomitant]
     Indication: CARDIAC DISORDER
     Dosage: UNK
  6. LYRICA [Suspect]
     Indication: FIBROMYALGIA

REACTIONS (4)
  - FIBROMYALGIA [None]
  - CYTOGENETIC ABNORMALITY [None]
  - PNEUMONIA [None]
  - OSTEOPOROSIS [None]
